FAERS Safety Report 19455437 (Version 1)
Quarter: 2021Q2

REPORT INFORMATION
  Report Type: Spontaneous
  Country: CN (occurrence: CN)
  Receive Date: 20210623
  Receipt Date: 20210623
  Transmission Date: 20210717
  Serious: Yes (Other)
  Sender: FDA-Public Use
  Company Number: CN-BAXTER-2021BAX017449

PATIENT
  Age: 57 Year
  Sex: Female
  Weight: 70 kg

DRUGS (4)
  1. 5% GLUCOSE  INJECTION [Suspect]
     Active Substance: DEXTROSE
     Indication: MEDICATION DILUTION
     Dosage: DAY 1: PIRARUBICIN HYDROCHLORIDE 100 MG + 5% GLUCOSE INJECTION 100ML; Q14D
     Route: 041
     Dates: start: 20210527, end: 20210527
  2. PIRARUBICIN HYDROCHLORIDE [Suspect]
     Active Substance: PIRARUBICIN HYDROCHLORIDE
     Indication: BREAST CANCER
     Dosage: DAY 1: PIRARUBICIN HYDROCHLORIDE 100 MG + 5% GLUCOSE INJECTION 100ML; Q14D
     Route: 041
     Dates: start: 20210527, end: 20210527
  3. ENDOXAN [Suspect]
     Active Substance: CYCLOPHOSPHAMIDE
     Indication: BREAST CANCER
     Dosage: DAY 1: ENDOXAN 1000 MG + 0.9% SODIUM CHLORIDE INJECTION 100ML; Q14D
     Route: 041
     Dates: start: 20210527, end: 20210527
  4. 0.9% SODIUM CHLORIDE INJECTION [Suspect]
     Active Substance: SODIUM CHLORIDE
     Indication: MEDICATION DILUTION
     Dosage: DAY 1: ENDOXAN 1000 MG + 0.9% SODIUM CHLORIDE INJECTION 100ML; Q14D
     Route: 041
     Dates: start: 20210527, end: 20210527

REACTIONS (1)
  - Myelosuppression [Recovered/Resolved]

NARRATIVE: CASE EVENT DATE: 20210609
